FAERS Safety Report 21350495 (Version 1)
Quarter: 2022Q3

REPORT INFORMATION
  Report Type: Spontaneous
  Country: US (occurrence: US)
  Receive Date: 20220919
  Receipt Date: 20220919
  Transmission Date: 20221027
  Serious: No
  Sender: FDA-Public Use
  Company Number: US-LUPIN PHARMACEUTICALS INC.-2022-11148

PATIENT
  Sex: Female

DRUGS (11)
  1. DECITABINE [Suspect]
     Active Substance: DECITABINE
     Indication: Hepatoblastoma
     Dosage: UNK
     Route: 065
  2. HYDROXYUREA [Concomitant]
     Active Substance: HYDROXYUREA
     Indication: Hepatoblastoma
     Dosage: UNK
     Route: 065
  3. MERCAPTOPURINE [Concomitant]
     Active Substance: MERCAPTOPURINE
     Indication: Hepatoblastoma
     Dosage: UNK
     Route: 065
  4. FLUDARABINE [Concomitant]
     Active Substance: FLUDARABINE PHOSPHATE
     Indication: Hepatoblastoma
     Dosage: UNK
     Route: 065
  5. BUSULFAN [Concomitant]
     Active Substance: BUSULFAN
     Indication: Hepatoblastoma
     Dosage: UNK
     Route: 065
  6. MELPHALAN [Concomitant]
     Active Substance: MELPHALAN
     Indication: Hepatoblastoma
     Dosage: UNK
     Route: 065
  7. LAPINE T-LYMPHOCYTE IMMUNE GLOBULIN [Concomitant]
     Active Substance: LAPINE T-LYMPHOCYTE IMMUNE GLOBULIN
     Indication: Hepatoblastoma
     Dosage: UNK
     Route: 065
  8. TACROLIMUS [Concomitant]
     Active Substance: TACROLIMUS
     Indication: Hepatoblastoma
     Dosage: UNK
     Route: 065
  9. MYCOPHENOLATE MOFETIL [Concomitant]
     Active Substance: MYCOPHENOLATE MOFETIL
     Indication: Hepatoblastoma
     Dosage: UNK
     Route: 065
  10. CYTARABINE [Concomitant]
     Active Substance: CYTARABINE
     Indication: Hepatoblastoma
     Dosage: 40 MILLIGRAM/SQ. METER, LOW-DOSE
     Route: 065
  11. CYTARABINE [Concomitant]
     Active Substance: CYTARABINE
     Dosage: UNK, HIGH-DOSE
     Route: 065

REACTIONS (1)
  - Off label use [Unknown]
